FAERS Safety Report 7315192-4 (Version None)
Quarter: 2011Q1

REPORT INFORMATION
  Report Type: 
  Country: None (occurrence: None)
  Receive Date: 20110225
  Receipt Date: 20110217
  Transmission Date: 20110831
  Serious: Yes (Hospitalization)
  Sender: FDA-Public Use
  Company Number: FR-JNJFOC-20110203897

PATIENT
  Sex: Female

DRUGS (8)
  1. RISPERDAL [Suspect]
     Indication: PRODUCT USED FOR UNKNOWN INDICATION
     Route: 048
  2. NORSET [Suspect]
     Indication: PRODUCT USED FOR UNKNOWN INDICATION
     Route: 048
  3. COVERSYL [Suspect]
     Indication: PRODUCT USED FOR UNKNOWN INDICATION
     Route: 048
  4. LERCANIDIPINE [Suspect]
     Indication: PRODUCT USED FOR UNKNOWN INDICATION
     Route: 048
  5. VITAMIN B1, B6 [Suspect]
     Indication: PRODUCT USED FOR UNKNOWN INDICATION
     Route: 048
  6. CORDARONE [Suspect]
     Indication: PRODUCT USED FOR UNKNOWN INDICATION
     Route: 048
  7. LEVOTHYROX [Suspect]
     Indication: PRODUCT USED FOR UNKNOWN INDICATION
     Dosage: 1.5 TABLETS OF 25 UG
     Route: 048
  8. CODOLIPRANE [Suspect]
     Indication: PRODUCT USED FOR UNKNOWN INDICATION
     Route: 048

REACTIONS (18)
  - HYPOTHERMIA [None]
  - EXTRAPYRAMIDAL DISORDER [None]
  - CEREBRAL ATROPHY [None]
  - COMA SCALE ABNORMAL [None]
  - ATRIOVENTRICULAR BLOCK [None]
  - TARDIVE DYSKINESIA [None]
  - OBSTRUCTIVE AIRWAYS DISORDER [None]
  - ELECTROCARDIOGRAM QT PROLONGED [None]
  - ELECTROCARDIOGRAM QRS COMPLEX ABNORMAL [None]
  - RESPIRATORY DISORDER [None]
  - FATIGUE [None]
  - COMA [None]
  - BRADYCARDIA [None]
  - RENAL FAILURE [None]
  - HYPOVENTILATION [None]
  - HYPOTENSION [None]
  - ALTERED STATE OF CONSCIOUSNESS [None]
  - FALL [None]
